FAERS Safety Report 10438824 (Version 1)
Quarter: 2014Q3

REPORT INFORMATION
  Report Type: Spontaneous
  Country: US (occurrence: US)
  Receive Date: 20140908
  Receipt Date: 20140908
  Transmission Date: 20150326
  Serious: No
  Sender: FDA-Public Use
  Company Number: US-BRISTOL-MYERS SQUIBB COMPANY-20593216

PATIENT
  Age: 12 Year
  Sex: Female
  Weight: 92.97 kg

DRUGS (1)
  1. ABILIFY [Suspect]
     Active Substance: ARIPIPRAZOLE
     Indication: SCHIZOPHRENIA, PARANOID TYPE
     Dates: start: 20140327

REACTIONS (6)
  - Diarrhoea [Unknown]
  - Hallucination, visual [Unknown]
  - Lip dry [Unknown]
  - Hypertension [Unknown]
  - Blood glucose increased [Unknown]
  - Thirst [Unknown]

NARRATIVE: CASE EVENT DATE: 2014
